FAERS Safety Report 10078781 (Version 1)
Quarter: 2014Q2

REPORT INFORMATION
  Report Type: Spontaneous
  Country: CH (occurrence: CH)
  Receive Date: 20140415
  Receipt Date: 20140415
  Transmission Date: 20141212
  Serious: Yes (Hospitalization, Other)
  Sender: FDA-Public Use
  Company Number: CH-PFIZER INC-2014101584

PATIENT
  Age: 58 Year
  Sex: Male
  Weight: 85 kg

DRUGS (25)
  1. LYRICA [Suspect]
     Dosage: 50 MG, 3X/DAY
     Route: 048
     Dates: end: 20140307
  2. TEMESTA [Suspect]
     Dosage: 1 MG, AS NEEDED
     Route: 048
     Dates: start: 20140221, end: 20140309
  3. VFEND [Interacting]
     Indication: PNEUMONIA FUNGAL
     Dosage: 300 MG, 2X/DAY
     Route: 048
     Dates: start: 20140225, end: 20140226
  4. VFEND [Interacting]
     Dosage: 200 MG, 2X/DAY
     Route: 048
     Dates: start: 20140227
  5. TRAMAL [Interacting]
     Dosage: 62.5 MG, 3X/DAY
     Dates: end: 20140220
  6. TRAMAL [Interacting]
     Dosage: 50-62.5 MG 1 TO 4 TIMES DAILY
     Dates: start: 20140221, end: 20140307
  7. SYNAGIS ^ABBOTT^ [Suspect]
     Indication: RESPIRATORY SYNCYTIAL VIRUS TEST POSITIVE
     Dosage: 600 MG, UNK
     Route: 041
     Dates: start: 20140308, end: 20140308
  8. COPEGUS [Suspect]
     Indication: PNEUMONIA VIRAL
     Dosage: 1200 MG, 3X/DAY
     Route: 048
     Dates: start: 20140226, end: 20140306
  9. COPEGUS [Suspect]
     Dosage: 800 MG, 3X/DAY
     Route: 048
     Dates: start: 20140307
  10. MERONEM [Suspect]
     Indication: PNEUMONIA
     Dosage: 1 G, 3X/DAY
     Route: 041
     Dates: start: 20140307
  11. MORPHINE [Suspect]
     Dosage: UNK
     Route: 041
     Dates: start: 20140307, end: 20140307
  12. MORPHINE [Suspect]
     Dosage: 1 MG/H
     Route: 041
     Dates: start: 20140308, end: 20140310
  13. PROGRAF [Interacting]
     Indication: PROPHYLAXIS AGAINST TRANSPLANT REJECTION
     Dosage: 0.5 MG, 2X/DAY
     Route: 048
  14. PROGRAF [Interacting]
     Dosage: 0.4 MG, 2X/DAY
     Route: 048
     Dates: start: 20140307
  15. PREDNISONE [Interacting]
     Dosage: 5 MG, 1X/DAY
     Route: 048
  16. SERESTA [Suspect]
     Dosage: 15 MG, AS NEEDED
     Route: 048
  17. CELLCEPT [Concomitant]
     Dosage: 1000 MG, 2X/DAY
     Route: 048
     Dates: end: 20140221
  18. CELLCEPT [Concomitant]
     Dosage: 500 MG, 2X/DAY
     Route: 048
     Dates: start: 20140228
  19. LISITRIL [Concomitant]
     Dosage: 15 MG, 1X/DAY
     Route: 048
     Dates: end: 20140307
  20. AMLODIPINE [Concomitant]
     Dosage: 10 MG, 1X/DAY
     Route: 048
  21. ASPIRINE [Concomitant]
     Dosage: 100 MG, 1X/DAY
     Route: 048
  22. JANUMET [Concomitant]
     Dosage: 500 MG, 2X/DAY
     Route: 048
     Dates: end: 20140307
  23. INSULIN PORCINE [Concomitant]
     Indication: DIABETES MELLITUS MANAGEMENT
     Route: 058
  24. PANTOZOL [Concomitant]
     Dosage: 40 MG, 2X/DAY
     Route: 048
     Dates: end: 20140307
  25. ESOMEPRAZOLE [Concomitant]
     Dosage: 40 MG, 1X/DAY
     Route: 048
     Dates: start: 20140307

REACTIONS (12)
  - Off label use [Unknown]
  - Prescribed overdose [Unknown]
  - Incorrect dose administered [Recovered/Resolved]
  - Underdose [Recovered/Resolved]
  - Drug interaction [Unknown]
  - Confusional state [Recovering/Resolving]
  - Aggression [Unknown]
  - Agitation [Unknown]
  - Withdrawal syndrome [Recovering/Resolving]
  - Respiratory failure [Unknown]
  - Pneumonia viral [Unknown]
  - Acute prerenal failure [Recovered/Resolved]
